FAERS Safety Report 22362315 (Version 1)
Quarter: 2023Q2

REPORT INFORMATION
  Report Type: Spontaneous
  Country: CN (occurrence: CN)
  Receive Date: 20230524
  Receipt Date: 20230524
  Transmission Date: 20230721
  Serious: Yes (Hospitalization, Other)
  Sender: FDA-Public Use
  Company Number: CN-PFIZER INC-PV202300090497

PATIENT
  Age: 27 Year
  Sex: Female
  Weight: 65 kg

DRUGS (8)
  1. DIFLUCAN [Suspect]
     Active Substance: FLUCONAZOLE
     Indication: Antifungal treatment
     Dosage: 200 MG, 2X/DAY
     Route: 041
     Dates: start: 20230307, end: 20230426
  2. DIFLUCAN [Suspect]
     Active Substance: FLUCONAZOLE
     Dosage: 0.4 G, 2X/DAY
     Route: 041
     Dates: start: 20230307, end: 20230426
  3. MANNITOL [Concomitant]
     Active Substance: MANNITOL
     Indication: Dehydration
     Dosage: 250 ML, 3X/DAY
     Route: 041
     Dates: start: 20230305
  4. MANNITOL [Concomitant]
     Active Substance: MANNITOL
     Indication: CSF pressure increased
     Dosage: 250 ML, 2X/DAY
     Dates: start: 20230306
  5. DEXAMETHASONE [Concomitant]
     Active Substance: DEXAMETHASONE
     Dosage: 2.5 MG, 3X/DAY
     Route: 041
     Dates: start: 20230306
  6. FLURBIPROFEN AXETIL [Concomitant]
     Active Substance: FLURBIPROFEN AXETIL
     Dosage: 50 MG
     Route: 041
     Dates: start: 20230306
  7. ILAPRAZOLE [Concomitant]
     Active Substance: ILAPRAZOLE
     Dosage: 10 MG
     Route: 041
     Dates: start: 20230306
  8. FLUCYTOSINE [Concomitant]
     Active Substance: FLUCYTOSINE
     Indication: Anti-infective therapy
     Dosage: 1.5 G (QID)
     Dates: start: 20230307

REACTIONS (6)
  - Drug-induced liver injury [Unknown]
  - Drug hypersensitivity [Unknown]
  - Hepatic function abnormal [Unknown]
  - Macule [Recovering/Resolving]
  - Rash [Recovering/Resolving]
  - Off label use [Unknown]

NARRATIVE: CASE EVENT DATE: 20230307
